FAERS Safety Report 22189998 (Version 2)
Quarter: 2023Q2

REPORT INFORMATION
  Report Type: Spontaneous
  Country: US (occurrence: US)
  Receive Date: 20230410
  Receipt Date: 20230519
  Transmission Date: 20230721
  Serious: No
  Sender: FDA-Public Use
  Company Number: US-LEO Pharma-350947

PATIENT
  Sex: Male

DRUGS (16)
  1. ADBRY [Suspect]
     Active Substance: TRALOKINUMAB-LDRM
     Indication: Dermatitis allergic
     Dosage: DOSAGE : 4 SYRINGES SUBCUTANEOUSLY ON DAY 1
     Route: 058
     Dates: start: 202303
  2. ADBRY [Suspect]
     Active Substance: TRALOKINUMAB-LDRM
     Indication: Dermatitis allergic
     Dosage: DOSAGE : 4 SYRINGES SUBCUTANEOUSLY ON DAY 1
     Route: 058
     Dates: start: 202303
  3. ADBRY [Suspect]
     Active Substance: TRALOKINUMAB-LDRM
     Indication: Dermatitis allergic
     Dosage: START MAINTENANCE DOSING AS DIRECTED STARTING ON DAY 14
     Route: 058
  4. ADBRY [Suspect]
     Active Substance: TRALOKINUMAB-LDRM
     Indication: Dermatitis allergic
     Dosage: START MAINTENANCE DOSING AS DIRECTED STARTING ON DAY 14
     Route: 058
  5. ADBRY [Suspect]
     Active Substance: TRALOKINUMAB-LDRM
     Indication: Dermatitis allergic
     Dosage: START MAINTENANCE DOSING AS DIRECTED STARTING ON DAY 14
     Route: 058
  6. ADBRY [Suspect]
     Active Substance: TRALOKINUMAB-LDRM
     Indication: Dermatitis allergic
     Dosage: START MAINTENANCE DOSING AS DIRECTED STARTING ON DAY 14
     Route: 058
  7. ADBRY [Suspect]
     Active Substance: TRALOKINUMAB-LDRM
     Indication: Dermatitis allergic
     Dosage: DOSAGE : 4 SYRINGES SUBCUTANEOUSLY ON DAY 1
     Route: 058
     Dates: start: 202303
  8. ADBRY [Suspect]
     Active Substance: TRALOKINUMAB-LDRM
     Indication: Dermatitis allergic
     Dosage: DOSAGE : 4 SYRINGES SUBCUTANEOUSLY ON DAY 1
     Route: 058
     Dates: start: 202303
  9. ADBRY [Suspect]
     Active Substance: TRALOKINUMAB-LDRM
     Indication: Dermatitis atopic
     Dosage: DOSAGE : 4 SYRINGES SUBCUTANEOUSLY ON DAY 1
     Route: 058
     Dates: start: 202303
  10. ADBRY [Suspect]
     Active Substance: TRALOKINUMAB-LDRM
     Indication: Dermatitis atopic
     Dosage: DOSAGE : 4 SYRINGES SUBCUTANEOUSLY ON DAY 1
     Route: 058
     Dates: start: 202303
  11. ADBRY [Suspect]
     Active Substance: TRALOKINUMAB-LDRM
     Indication: Dermatitis atopic
     Dosage: START MAINTENANCE DOSING AS DIRECTED STARTING ON DAY 14
     Route: 058
  12. ADBRY [Suspect]
     Active Substance: TRALOKINUMAB-LDRM
     Indication: Dermatitis atopic
     Dosage: START MAINTENANCE DOSING AS DIRECTED STARTING ON DAY 14
     Route: 058
  13. ADBRY [Suspect]
     Active Substance: TRALOKINUMAB-LDRM
     Indication: Dermatitis atopic
     Dosage: START MAINTENANCE DOSING AS DIRECTED STARTING ON DAY 14
     Route: 058
  14. ADBRY [Suspect]
     Active Substance: TRALOKINUMAB-LDRM
     Indication: Dermatitis atopic
     Dosage: START MAINTENANCE DOSING AS DIRECTED STARTING ON DAY 14
     Route: 058
  15. ADBRY [Suspect]
     Active Substance: TRALOKINUMAB-LDRM
     Indication: Dermatitis atopic
     Dosage: DOSAGE : 4 SYRINGES SUBCUTANEOUSLY ON DAY 1
     Route: 058
     Dates: start: 202303
  16. ADBRY [Suspect]
     Active Substance: TRALOKINUMAB-LDRM
     Indication: Dermatitis atopic
     Dosage: DOSAGE : 4 SYRINGES SUBCUTANEOUSLY ON DAY 1
     Route: 058
     Dates: start: 202303

REACTIONS (9)
  - Confusional state [Unknown]
  - Pain [Unknown]
  - Dizziness [Unknown]
  - Depression [Unknown]
  - Fatigue [Not Recovered/Not Resolved]
  - Skin discomfort [Not Recovered/Not Resolved]
  - Anxiety [Unknown]
  - Rash [Unknown]
  - Pruritus [Unknown]
